FAERS Safety Report 6752653-0 (Version None)
Quarter: 2010Q2

REPORT INFORMATION
  Report Type: 
  Country: None (occurrence: None)
  Receive Date: 20100601
  Receipt Date: 20100601
  Transmission Date: 20101027
  Serious: Yes (Hospitalization, Other)
  Sender: FDA-Public Use
  Company Number: None

PATIENT
  Age: 66 Year
  Sex: Female
  Weight: 74.8435 kg

DRUGS (1)
  1. PHENTERMINE [Suspect]
     Indication: OBESITY
     Dates: start: 20100222, end: 20100224

REACTIONS (8)
  - ABNORMAL BEHAVIOUR [None]
  - DELUSION [None]
  - DEPRESSION [None]
  - MANIA [None]
  - PANIC ATTACK [None]
  - PARANOIA [None]
  - SEDATION [None]
  - THINKING ABNORMAL [None]
